FAERS Safety Report 4932729-0 (Version None)
Quarter: 2006Q1

REPORT INFORMATION
  Report Type: 
  Country: None (occurrence: None)
  Receive Date: 20060301
  Receipt Date: 20060301
  Transmission Date: 20060701
  Serious: Yes (Other)
  Sender: FDA-Public Use
  Company Number: None

PATIENT
  Age: 10 Year
  Sex: Female
  Weight: 35.3806 kg

DRUGS (2)
  1. TESSALON [Suspect]
     Indication: COUGH
     Dosage: ONE PERLE GIVEN ONLY    PO
     Route: 048
     Dates: start: 20060221, end: 20060221
  2. AZITHROMYCIN [Concomitant]

REACTIONS (3)
  - ABNORMAL BEHAVIOUR [None]
  - AMNESIA [None]
  - HALLUCINATION [None]
